FAERS Safety Report 8027124-4 (Version None)
Quarter: 2012Q1

REPORT INFORMATION
  Report Type: 
  Country: None (occurrence: None)
  Receive Date: 20120106
  Receipt Date: 20120103
  Transmission Date: 20120608
  Serious: Yes (Hospitalization, Other)
  Sender: FDA-Public Use
  Company Number: PHEH2008US01226

PATIENT
  Sex: Female

DRUGS (71)
  1. AREDIA [Suspect]
     Indication: METASTASES TO BONE
     Dosage: 90 MG, QMO
     Dates: start: 19960501, end: 20020801
  2. BUMETANIDE [Concomitant]
  3. PROPOXYPHENE HCL AND ACETAMINOPHEN [Concomitant]
     Dosage: 650 MG, UNK
     Dates: start: 20000528
  4. OXYCODONE HCL AND ACETAMINOPHEN [Concomitant]
     Dosage: 650 MG, UNK
     Dates: start: 20030424
  5. PENICILLIN VK [Concomitant]
     Dates: start: 20040421
  6. AMOXICILLIN [Concomitant]
     Dosage: 500 MG, UNK
     Dates: start: 20040521
  7. ANTIBIOTICS [Concomitant]
     Indication: ORAL INFECTION
     Dates: start: 19971201
  8. CANDESARTAN CILEXETIL [Concomitant]
  9. SODIUM CHLORIDE [Concomitant]
     Dosage: 2 ML, UNK
  10. VITAMIN C [Concomitant]
     Dosage: 500 MG, UNK
  11. DECADRON                                /NET/ [Concomitant]
     Dosage: 3 MG, UNK
  12. ZOFRAN [Concomitant]
     Dosage: 4 MG, UNK
  13. DECADRON [Concomitant]
  14. CELEBREX [Concomitant]
     Dosage: 200 MG, QD
  15. TOPROL-XL [Concomitant]
     Dosage: 20 MG, DAILY
  16. ANESTHETICS NOS [Concomitant]
  17. CARBOCAINE [Concomitant]
  18. NORVASC [Concomitant]
     Dosage: 2.5 MG, UNK
     Dates: start: 20040623
  19. MORPHINE [Concomitant]
     Dosage: 50 MG, UNK
     Route: 042
  20. DITROPAN [Concomitant]
  21. NORVASC [Concomitant]
     Dosage: 5 MG, UNK
  22. AUGMENTIN '125' [Concomitant]
     Dosage: 875 MG, BID
     Dates: start: 20080304
  23. LINCOCIN [Concomitant]
     Dosage: 300 MG, UNK
     Dates: start: 20040505
  24. DOXORUBICIN HCL [Concomitant]
  25. LOVENOX [Concomitant]
     Dosage: 45 MG, UNK
  26. THALIDOMIDE [Concomitant]
     Dosage: 50 MG, UNK
  27. NARCAN [Concomitant]
     Dosage: 0.4 MG, UNK
  28. MELPHALAN [Concomitant]
  29. VITACON [Concomitant]
  30. DEXAMETHASONE [Concomitant]
     Dates: start: 19950101, end: 19980501
  31. VICODIN ES [Concomitant]
     Indication: PAIN
     Dates: start: 20080213
  32. AMBIEN [Concomitant]
     Dosage: 10 MG, UNK
     Dates: start: 20000404
  33. VIOXX [Concomitant]
     Dosage: 25 MG, UNK
     Dates: start: 20000629
  34. LANOXIN [Concomitant]
     Dosage: 250 MG, UNK
     Dates: start: 20040319
  35. SULFAMETHOXAZOLE [Concomitant]
     Dates: start: 20050426
  36. FUROSEMIDE [Concomitant]
     Dates: start: 20050509
  37. KENALOG [Concomitant]
  38. INTRON A [Concomitant]
     Dates: end: 19990501
  39. PERI-COLACE [Concomitant]
  40. DEXTROSE 5% AND SODIUM CHLORIDE 0.45% IN PLASTIC CONTAINER [Concomitant]
  41. ATROVENT [Concomitant]
  42. AXID [Concomitant]
     Dosage: 150 MG, BID
     Route: 048
  43. MICARDIS [Concomitant]
     Dosage: 80 MG, UNK
  44. POTASSIUM CHLORIDE [Concomitant]
  45. PEN-VEE K [Concomitant]
     Dosage: 500 MG, QID
     Dates: start: 20080225, end: 20080304
  46. ATACAND [Concomitant]
     Dosage: 32 MG, QD
  47. ROXICET [Concomitant]
     Indication: PAIN
     Route: 048
  48. ZOMETA [Suspect]
     Dosage: 4 MG, MONTHLY
     Dates: start: 20020927, end: 20040401
  49. THALOMID [Concomitant]
     Dosage: 50 MG, QD
     Route: 048
  50. BACTRIM [Concomitant]
  51. CLINDAMYCIN [Concomitant]
     Dosage: 1350 MG, QD
  52. ACCUPRIL [Concomitant]
     Dates: start: 20011002
  53. ALBUTEROL [Concomitant]
     Dates: start: 20010301
  54. AMCILL-S [Concomitant]
     Dates: start: 20040611
  55. DIURETICS [Concomitant]
  56. DIPRIVAN [Concomitant]
  57. VINCRISTINE [Concomitant]
  58. CALCIUM W/VITAMIN D NOS [Concomitant]
  59. COUMADIN [Concomitant]
     Dosage: 4 MG, QD
  60. ACIPHEX [Concomitant]
  61. SALINE [Concomitant]
  62. LORAZEPAM [Concomitant]
  63. AMOXI [Concomitant]
  64. ALLEGRA [Concomitant]
     Dates: start: 20010301
  65. LEVAQUIN [Concomitant]
     Dosage: 500 MG, UNK
     Dates: start: 20010309
  66. KLOR-CON [Concomitant]
     Dates: start: 20010723
  67. METRONIDAZOLE [Concomitant]
     Dosage: 4 MG, UNK
     Dates: start: 20030812
  68. ULTRACET [Concomitant]
     Dates: start: 20041201
  69. ACETAMINOPHEN [Concomitant]
  70. PERCOCET [Concomitant]
     Dosage: 5 MG, UNK
  71. ADRIAMYCIN PFS [Concomitant]

REACTIONS (96)
  - GINGIVAL INFECTION [None]
  - MASS [None]
  - GINGIVITIS [None]
  - GINGIVAL PAIN [None]
  - TRANSIENT ISCHAEMIC ATTACK [None]
  - COLON CANCER [None]
  - SICK SINUS SYNDROME [None]
  - ASTHMA [None]
  - DYSPNOEA EXERTIONAL [None]
  - PROTEIN URINE PRESENT [None]
  - ATRIOVENTRICULAR BLOCK [None]
  - LUMBAR RADICULOPATHY [None]
  - BONE DISORDER [None]
  - PAIN IN JAW [None]
  - CONFUSIONAL STATE [None]
  - SINUSITIS [None]
  - VERTIGO [None]
  - MITRAL VALVE CALCIFICATION [None]
  - BURSITIS [None]
  - ORAL DISORDER [None]
  - SACROILIITIS [None]
  - ABSCESS JAW [None]
  - PHYSICAL DISABILITY [None]
  - CHARLES BONNET SYNDROME [None]
  - INTRACRANIAL ANEURYSM [None]
  - PULMONARY EMBOLISM [None]
  - ENCEPHALOPATHY [None]
  - GASTRITIS [None]
  - BACK DISORDER [None]
  - SPINAL OSTEOARTHRITIS [None]
  - SPINAL DISORDER [None]
  - ORAL INFECTION [None]
  - OSTEITIS [None]
  - SINUS DISORDER [None]
  - HYPERTENSION [None]
  - ARTHRALGIA [None]
  - SPINAL COMPRESSION FRACTURE [None]
  - VERTEBRAL FORAMINAL STENOSIS [None]
  - LUNG NEOPLASM [None]
  - SEBORRHOEIC KERATOSIS [None]
  - DENTAL FISTULA [None]
  - GINGIVAL ULCERATION [None]
  - SUBARACHNOID HAEMORRHAGE [None]
  - DEAFNESS NEUROSENSORY [None]
  - BRUXISM [None]
  - BLOOD IMMUNOGLOBULIN A INCREASED [None]
  - MYALGIA [None]
  - CAROTID ARTERY STENOSIS [None]
  - SYNOVIAL CYST [None]
  - LUMBAR SPINAL STENOSIS [None]
  - CONSTIPATION [None]
  - DIARRHOEA [None]
  - INTERVERTEBRAL DISC PROTRUSION [None]
  - INJURY [None]
  - PAIN [None]
  - ANXIETY [None]
  - CATARACT [None]
  - ANAEMIA [None]
  - ASTHENIA [None]
  - HERPES ZOSTER [None]
  - OEDEMA MOUTH [None]
  - JOINT STIFFNESS [None]
  - JAW FRACTURE [None]
  - FACE OEDEMA [None]
  - DENTAL CARIES [None]
  - CARDIAC FAILURE CONGESTIVE [None]
  - OEDEMA PERIPHERAL [None]
  - MOUTH ULCERATION [None]
  - SPINAL COLUMN STENOSIS [None]
  - FIBROMA [None]
  - POLYP [None]
  - DIVERTICULUM [None]
  - SQUAMOUS CELL CARCINOMA [None]
  - URINARY INCONTINENCE [None]
  - ARTHROPATHY [None]
  - PERIODONTAL DISEASE [None]
  - OSTEOMYELITIS [None]
  - ACTIVITIES OF DAILY LIVING IMPAIRED [None]
  - HYPOAESTHESIA [None]
  - GINGIVAL SWELLING [None]
  - MACROGLOSSIA [None]
  - ATRIAL FIBRILLATION [None]
  - OSTEOPENIA [None]
  - RESPIRATORY FAILURE [None]
  - ACTINOMYCOSIS [None]
  - GASTROOESOPHAGEAL REFLUX DISEASE [None]
  - OSTEONECROSIS OF JAW [None]
  - MASTICATION DISORDER [None]
  - SPEECH DISORDER [None]
  - EAR NEOPLASM [None]
  - BLOOD CREATINE PHOSPHOKINASE INCREASED [None]
  - CARDIAC DISORDER [None]
  - OSTEOARTHRITIS [None]
  - BLEPHARITIS [None]
  - NEOPLASM MALIGNANT [None]
  - HEPATIC FUNCTION ABNORMAL [None]
